FAERS Safety Report 4957096-8 (Version None)
Quarter: 2006Q1

REPORT INFORMATION
  Report Type: 
  Country: None (occurrence: None)
  Receive Date: 20060323
  Receipt Date: 20060309
  Transmission Date: 20060701
  Serious: Yes (Death)
  Sender: FDA-Public Use
  Company Number: US200603002579

PATIENT
  Age: 66 Year
  Sex: Male

DRUGS (1)
  1. CYMBALTA [Suspect]
     Dosage: 30 MG DAILY (1/D)

REACTIONS (2)
  - ALCOHOLIC [None]
  - COMPLETED SUICIDE [None]
